FAERS Safety Report 8603380-6 (Version None)
Quarter: 2012Q3

REPORT INFORMATION
  Report Type: 
  Country: None (occurrence: None)
  Receive Date: 20120817
  Receipt Date: 20120810
  Transmission Date: 20120928
  Serious: Yes (Death, Other)
  Sender: FDA-Public Use
  Company Number: US-PURDUE-USA-2012-0091523

PATIENT
  Sex: Female

DRUGS (18)
  1. OXYCODONE HCL [Suspect]
     Indication: PAIN
     Dosage: 10-20 MG Q3-4 H PRN
     Dates: start: 20120131
  2. MS CONTIN [Concomitant]
     Indication: PAIN
  3. TYLENOL (CAPLET) [Concomitant]
     Indication: PRODUCT USED FOR UNKNOWN INDICATION
     Dosage: 500 MG, PRN
  4. OXYCONTIN [Suspect]
     Indication: PAIN
     Dosage: 10 MG, Q12H
     Dates: start: 20120131
  5. XALKORI [Suspect]
     Indication: LUNG NEOPLASM MALIGNANT
     Dosage: 250 MG, BID
     Route: 048
     Dates: start: 20120222, end: 20120229
  6. SENOKOT [Concomitant]
     Indication: PRODUCT USED FOR UNKNOWN INDICATION
     Dosage: UNK, PRN
  7. ZOFRAN [Concomitant]
  8. ROXANOL [Concomitant]
     Indication: PAIN
  9. ROBITUSSIN                         /00048001/ [Concomitant]
     Indication: COUGH
     Dosage: UNK, PRN
  10. KLONOPIN [Concomitant]
     Indication: PRODUCT USED FOR UNKNOWN INDICATION
     Dosage: 0.5 MG, HS
  11. SUDAFED S.A. [Concomitant]
     Indication: PRODUCT USED FOR UNKNOWN INDICATION
     Dosage: UNK, PRN
  12. CHLORASEPTIC [Concomitant]
     Indication: PRODUCT USED FOR UNKNOWN INDICATION
     Dosage: UNK, PRN
  13. VITAMIN B6 [Concomitant]
     Indication: PRODUCT USED FOR UNKNOWN INDICATION
     Dosage: 50 MG, BID
  14. VITAMIN B12                        /00056201/ [Concomitant]
     Indication: PRODUCT USED FOR UNKNOWN INDICATION
     Dosage: 1 MG, QD PRN
  15. TUSSIONEX [Concomitant]
     Indication: COUGH
     Dosage: UNK, PRN
  16. VIACTIV                            /00751501/ [Concomitant]
     Indication: PRODUCT USED FOR UNKNOWN INDICATION
     Dosage: UNK, BID
  17. AMBIEN [Concomitant]
     Indication: PRODUCT USED FOR UNKNOWN INDICATION
     Dosage: 5 MG, HS
  18. FOSAMAX [Concomitant]
     Indication: DYSPEPSIA

REACTIONS (12)
  - MUSCULOSKELETAL PAIN [None]
  - NAUSEA [None]
  - PRODUCT SIZE ISSUE [None]
  - CONSTIPATION [None]
  - HAEMOPTYSIS [None]
  - DRUG INEFFECTIVE [None]
  - HEADACHE [None]
  - VOMITING [None]
  - NEOPLASM MALIGNANT [None]
  - LYMPHADENOPATHY [None]
  - DECREASED APPETITE [None]
  - UNEVALUABLE EVENT [None]
